FAERS Safety Report 13032225 (Version 2)
Quarter: 2016Q4

REPORT INFORMATION
  Report Type: Spontaneous
  Country: JP (occurrence: JP)
  Receive Date: 20161215
  Receipt Date: 20161227
  Transmission Date: 20170207
  Serious: Yes (Hospitalization)
  Sender: FDA-Public Use
  Company Number: JP-DSJP-DSJ-2016-141375

PATIENT

DRUGS (2)
  1. LIXIANA TABLETS [Suspect]
     Active Substance: EDOXABAN TOSILATE MONOHYDRATE
     Indication: VENOUS THROMBOSIS
     Dosage: 60MG/DAY
     Route: 065
     Dates: start: 20141226, end: 20151027
  2. AFATINIB MALEATE [Concomitant]
     Active Substance: AFATINIB DIMALEATE
     Dosage: UNK
     Route: 065

REACTIONS (1)
  - Cerebral infarction [Recovering/Resolving]

NARRATIVE: CASE EVENT DATE: 20151027
